FAERS Safety Report 10086865 (Version 1)
Quarter: 2014Q2

REPORT INFORMATION
  Report Type: Spontaneous
  Country: US (occurrence: US)
  Receive Date: 20140418
  Receipt Date: 20140418
  Transmission Date: 20141212
  Serious: Yes (Hospitalization)
  Sender: FDA-Public Use
  Company Number: US-TEVA-476156USA

PATIENT
  Age: 24 Year
  Sex: Male

DRUGS (3)
  1. BLEOMYCIN [Suspect]
     Indication: TESTICULAR CANCER METASTATIC
     Route: 065
  2. CISPLATIN [Suspect]
     Indication: TESTICULAR CANCER METASTATIC
     Route: 065
  3. ETOPOSIDE [Suspect]
     Indication: TESTICULAR CANCER METASTATIC
     Route: 065

REACTIONS (1)
  - Febrile neutropenia [Recovering/Resolving]
